FAERS Safety Report 20322376 (Version 1)
Quarter: 2022Q1

REPORT INFORMATION
  Report Type: Report from Study
  Country: US (occurrence: US)
  Receive Date: 20220111
  Receipt Date: 20220111
  Transmission Date: 20220423
  Serious: Yes (Hospitalization)
  Sender: FDA-Public Use
  Company Number: US-ABBVIE-22K-163-4226650-00

PATIENT
  Age: 68 Year
  Sex: Male

DRUGS (1)
  1. HUMIRA [Suspect]
     Active Substance: ADALIMUMAB
     Indication: Crohn^s disease
     Dosage: CITRATE FREE
     Route: 058
     Dates: start: 20210916, end: 20211126

REACTIONS (3)
  - Stoma site haemorrhage [Recovering/Resolving]
  - Stoma site infection [Recovering/Resolving]
  - Stoma site discharge [Recovering/Resolving]

NARRATIVE: CASE EVENT DATE: 20211201
